FAERS Safety Report 8261180-3 (Version None)
Quarter: 2012Q2

REPORT INFORMATION
  Report Type: 
  Country: None (occurrence: None)
  Receive Date: 20120405
  Receipt Date: 20120328
  Transmission Date: 20120825
  Serious: Yes (Other)
  Sender: FDA-Public Use
  Company Number: US-US-EMD SERONO, INC.-7122688

PATIENT
  Sex: Female
  Weight: 82 kg

DRUGS (2)
  1. LYRICA [Concomitant]
     Indication: FIBROMYALGIA
  2. REBIF [Suspect]
     Indication: MULTIPLE SCLEROSIS
     Route: 058
     Dates: start: 20100917

REACTIONS (3)
  - RIB FRACTURE [None]
  - BREAST CANCER [None]
  - FALL [None]
